FAERS Safety Report 25690187 (Version 3)
Quarter: 2025Q4

REPORT INFORMATION
  Report Type: Spontaneous
  Country: IL (occurrence: IL)
  Receive Date: 20250818
  Receipt Date: 20251008
  Transmission Date: 20260118
  Serious: Yes (Other)
  Sender: ROCHE
  Company Number: IL-ROCHE-10000361903

PATIENT

DRUGS (2)
  1. AVASTIN [Suspect]
     Active Substance: BEVACIZUMAB
     Indication: Retinal disorder
     Route: 031
  2. AVASTIN [Suspect]
     Active Substance: BEVACIZUMAB
     Route: 031

REACTIONS (2)
  - Off label use [Unknown]
  - Inflammation [Unknown]
